FAERS Safety Report 10598057 (Version 1)
Quarter: 2014Q4

REPORT INFORMATION
  Report Type: Spontaneous
  Country: US (occurrence: US)
  Receive Date: 20141121
  Receipt Date: 20141121
  Transmission Date: 20150529
  Serious: Yes (Hospitalization)
  Sender: FDA-Public Use
  Company Number: US-PFIZER INC-2014317937

PATIENT
  Age: 32 Year
  Sex: Male
  Weight: 136 kg

DRUGS (6)
  1. VERAPAMIL [Concomitant]
     Active Substance: VERAPAMIL HYDROCHLORIDE
     Indication: CLUSTER HEADACHE
     Dosage: 80 MG, 3X/DAY
     Route: 048
  2. LYRICA [Suspect]
     Active Substance: PREGABALIN
     Indication: NEUROPATHY PERIPHERAL
     Dosage: 150 MG, 4X/DAY
     Route: 048
  3. TYLENOL [Concomitant]
     Active Substance: ACETAMINOPHEN
     Dosage: PROBABLY 4 TABLETS
  4. TIZANIDINE (TIZANIDINE) [Concomitant]
     Active Substance: TIZANIDINE
     Indication: NEUROPATHY PERIPHERAL
     Dosage: 4MG ONE TO TWO TABLETS, 4 TIMES A DAY)
     Route: 048
  5. TIZANIDINE (TIZANIDINE) [Concomitant]
     Active Substance: TIZANIDINE
     Indication: MUSCLE SPASMS
     Dosage: TAKE UP TO EIGHT A DAY
     Route: 048
  6. WARFARIN/COUMADIN [Concomitant]
     Indication: PULMONARY THROMBOSIS
     Dosage: 5 MG, 1X/DAY
     Route: 048

REACTIONS (3)
  - Pulmonary thrombosis [Unknown]
  - Haemoptysis [Unknown]
  - Pneumonia [Unknown]

NARRATIVE: CASE EVENT DATE: 2014
